FAERS Safety Report 20418906 (Version 1)
Quarter: 2022Q1

REPORT INFORMATION
  Report Type: Spontaneous
  Country: CA (occurrence: CA)
  Receive Date: 20220202
  Receipt Date: 20220202
  Transmission Date: 20220424
  Serious: Yes (Other)
  Sender: FDA-Public Use
  Company Number: CA-AUROBINDO-AUR-APL-2022-002322

PATIENT
  Age: 63 Year
  Sex: Male

DRUGS (18)
  1. AMLODIPINE [Suspect]
     Active Substance: AMLODIPINE BESYLATE
     Indication: Blood pressure increased
     Dosage: 2.5 MILLIGRAM, ONCE A DAY
     Route: 065
  2. ERLEADA [Suspect]
     Active Substance: APALUTAMIDE
     Indication: Prostate cancer
     Dosage: 240 MILLIGRAM, ONCE A DAY
     Route: 048
  3. ACETAMINOPHEN [Concomitant]
     Active Substance: ACETAMINOPHEN
     Indication: Product used for unknown indication
     Dosage: UNK
     Route: 048
  4. ASPIRIN [Concomitant]
     Active Substance: ASPIRIN
     Indication: Product used for unknown indication
     Dosage: UNK, ONCE A DAY
     Route: 048
  5. ALFACALCIDOL [Concomitant]
     Active Substance: ALFACALCIDOL
     Indication: Product used for unknown indication
     Dosage: 2.5 MICROGRAM
     Route: 048
  6. ALTEPLASE [Concomitant]
     Active Substance: ALTEPLASE
     Indication: Product used for unknown indication
     Dosage: 10 MILLIGRAM
     Route: 065
  7. AMOXICILLIN\CLAVULANIC ACID [Concomitant]
     Active Substance: AMOXICILLIN\CLAVULANIC ACID
     Indication: Product used for unknown indication
     Dosage: UNK UNK, TWO TIMES A DAY
     Route: 048
  8. ATORVASTATIN CALCIUM [Concomitant]
     Active Substance: ATORVASTATIN CALCIUM
     Indication: Product used for unknown indication
     Dosage: 10 MILLIGRAM, ONCE A DAY
     Route: 048
  9. DARBEPOETIN ALFA [Concomitant]
     Active Substance: DARBEPOETIN ALFA
     Indication: Product used for unknown indication
     Dosage: 40 MICROGRAM
     Route: 042
  10. DICLOFENAC [Concomitant]
     Active Substance: DICLOFENAC
     Indication: Product used for unknown indication
     Dosage: UNK, TWO TIMES A DAY
     Route: 061
  11. EPINEPHRINE [Concomitant]
     Active Substance: EPINEPHRINE
     Indication: Product used for unknown indication
     Dosage: UNK
     Route: 030
  12. Influenza vaccine inact split 4v [Concomitant]
     Indication: Product used for unknown indication
     Dosage: 0.5 MILLIGRAM
     Route: 030
  13. METOPROLOL [Concomitant]
     Active Substance: METOPROLOL
     Indication: Product used for unknown indication
     Dosage: 25 MILLIGRAM, TWO TIMES A DAY
     Route: 048
  14. PANTOPRAZOLE [Concomitant]
     Active Substance: PANTOPRAZOLE
     Indication: Product used for unknown indication
     Dosage: 40 MILLIGRAM, ONCE A DAY
     Route: 048
  15. PERINDOPRIL [Concomitant]
     Active Substance: PERINDOPRIL
     Indication: Product used for unknown indication
     Dosage: 8 MILLIGRAM, ONCE A DAY
     Route: 048
  16. PNEUMOCOCCAL VACCINE POLYVALENT NOS [Concomitant]
     Active Substance: PNEUMOCOCCAL VACCINE POLYVALENT
     Indication: Product used for unknown indication
     Dosage: 0.5 MILLILITER, AS REQUIRED
     Route: 030
  17. CYANOCOBALAMIN\PYRIDOXINE HYDROCHLORIDE\RIBOFLAVIN\SODIUM PANTOTHENATE [Concomitant]
     Active Substance: CYANOCOBALAMIN\PYRIDOXINE HYDROCHLORIDE\RIBOFLAVIN\SODIUM PANTOTHENATE\THIAMINE HYDROCHLORIDE\VITAMI
     Indication: Product used for unknown indication
     Dosage: UNK, ONCE A DAY
     Route: 048
  18. ASCORBIC ACID [Concomitant]
     Active Substance: ASCORBIC ACID
     Indication: Product used for unknown indication
     Dosage: UNK, ONCE A DAY
     Route: 048

REACTIONS (2)
  - Drug interaction [Unknown]
  - Drug ineffective [Unknown]
